FAERS Safety Report 13205672 (Version 1)
Quarter: 2017Q1

REPORT INFORMATION
  Report Type: Spontaneous
  Country: US (occurrence: US)
  Receive Date: 20170207
  Receipt Date: 20170207
  Transmission Date: 20170428
  Serious: Yes (Life-Threatening, Hospitalization)
  Sender: FDA-Public Use
  Company Number: None

PATIENT
  Age: 68 Year
  Sex: Female

DRUGS (1)
  1. ZOLEDRONIC ACID INFUSION [Suspect]
     Active Substance: ZOLEDRONIC ACID
     Indication: OSTEOPOROSIS
     Dosage: ?          OTHER FREQUENCY:ONCE ONLY;?
     Route: 042

REACTIONS (2)
  - Dialysis [None]
  - Renal failure [None]

NARRATIVE: CASE EVENT DATE: 20170206
